FAERS Safety Report 9339371 (Version 2)
Quarter: 2013Q4

REPORT INFORMATION
  Report Type: Spontaneous
  Country: US (occurrence: US)
  Receive Date: 20130610
  Receipt Date: 20131118
  Transmission Date: 20140711
  Serious: Yes (Other)
  Sender: FDA-Public Use
  Company Number: US-BIOGENIDEC-2013BI049388

PATIENT
  Age: 44 Year
  Sex: Female

DRUGS (3)
  1. AVONEX [Suspect]
     Indication: MULTIPLE SCLEROSIS
     Route: 030
  2. AVONEX [Suspect]
     Indication: MULTIPLE SCLEROSIS
     Route: 030
     Dates: start: 20100212
  3. GILENYA [Concomitant]
     Indication: MULTIPLE SCLEROSIS

REACTIONS (9)
  - Haemorrhagic stroke [Unknown]
  - Gastric ulcer [Unknown]
  - Memory impairment [Not Recovered/Not Resolved]
  - Induration [Not Recovered/Not Resolved]
  - Contusion [Not Recovered/Not Resolved]
  - Blindness transient [Unknown]
  - Aphagia [Not Recovered/Not Resolved]
  - Dysstasia [Not Recovered/Not Resolved]
  - Headache [Unknown]
